FAERS Safety Report 9999446 (Version 1)
Quarter: 2014Q1

REPORT INFORMATION
  Report Type: Spontaneous
  Country: US (occurrence: US)
  Receive Date: 20140312
  Receipt Date: 20140312
  Transmission Date: 20141002
  Serious: Yes (Other)
  Sender: FDA-Public Use
  Company Number: US-THROMBOGENICS INC.-JET-2014-083

PATIENT
  Age: 80 Year
  Sex: Male

DRUGS (1)
  1. JETREA [Suspect]
     Indication: VITREOUS ADHESIONS
     Dosage: 0.125 MG, ONE TIME DOSE
     Route: 031
     Dates: start: 20131219, end: 20131219

REACTIONS (13)
  - Visual acuity reduced [Unknown]
  - Eye pain [Unknown]
  - Photophobia [Unknown]
  - Retinal oedema [Recovered/Resolved]
  - Detachment of retinal pigment epithelium [Unknown]
  - Age-related macular degeneration [Unknown]
  - Anterior chamber cell [Recovered/Resolved]
  - Iritis [Recovered/Resolved]
  - Pupillary reflex impaired [Recovered/Resolved]
  - Corneal oedema [Recovered/Resolved]
  - Pupils unequal [Recovered/Resolved]
  - Cataract [Unknown]
  - Conjunctival oedema [Recovered/Resolved]
